FAERS Safety Report 8025140-X (Version None)
Quarter: 2012Q1

REPORT INFORMATION
  Report Type: 
  Country: None (occurrence: None)
  Receive Date: 20120105
  Receipt Date: 20120104
  Transmission Date: 20120608
  Serious: Yes (Other)
  Sender: FDA-Public Use
  Company Number: CA-ROCHE-1006887

PATIENT
  Sex: Female
  Weight: 68.1 kg

DRUGS (14)
  1. MABTHERA [Suspect]
     Route: 042
     Dates: start: 20111207
  2. NORVASC [Concomitant]
  3. AVAPRO [Concomitant]
  4. DIPHENHYDRAMINE HCL [Concomitant]
     Indication: PREMEDICATION
     Route: 048
     Dates: start: 20111018, end: 20111018
  5. ACETAMINOPHEN [Concomitant]
     Indication: PREMEDICATION
     Route: 048
     Dates: start: 20111018, end: 20111018
  6. CALCIUM ACETATE [Concomitant]
  7. VITAMIN D [Concomitant]
  8. MABTHERA [Suspect]
     Indication: RHEUMATOID ARTHRITIS
     Dosage: DAY 1 + 15
     Route: 042
     Dates: start: 20110301
  9. MABTHERA [Suspect]
     Route: 042
     Dates: start: 20111018
  10. ACTONEL [Concomitant]
  11. URSO 250 [Concomitant]
  12. PREVACID [Concomitant]
  13. MEDROL [Concomitant]
  14. METHYLPREDNISOLONE [Concomitant]
     Indication: PREMEDICATION
     Route: 042
     Dates: start: 20111018, end: 20111018

REACTIONS (1)
  - HEPATITIS B [None]
